FAERS Safety Report 6680771-4 (Version None)
Quarter: 2010Q2

REPORT INFORMATION
  Report Type: 
  Country: None (occurrence: None)
  Receive Date: 20100414
  Receipt Date: 20100401
  Transmission Date: 20101027
  Serious: Yes (Other)
  Sender: FDA-Public Use
  Company Number: PHEH2009US04973

PATIENT
  Sex: Female
  Weight: 59 kg

DRUGS (2)
  1. EXJADE [Suspect]
     Dosage: 1375MG DAILY
     Route: 048
     Dates: start: 20060701, end: 20090527
  2. PENICILLIN [Suspect]
     Dosage: 250 MG, BID
     Route: 048
     Dates: start: 20000101

REACTIONS (3)
  - CAESAREAN SECTION [None]
  - DRUG EXPOSURE DURING PREGNANCY [None]
  - FOETAL DISTRESS SYNDROME [None]
